FAERS Safety Report 6206467-0 (Version None)
Quarter: 2009Q2

REPORT INFORMATION
  Report Type: 
  Country: None (occurrence: None)
  Receive Date: 20090528
  Receipt Date: 20090427
  Transmission Date: 20091009
  Serious: No
  Sender: FDA-Public Use
  Company Number: US-BAYER-200840527NA

PATIENT
  Age: 24 Year
  Sex: Female
  Weight: 61 kg

DRUGS (1)
  1. MIRENA [Suspect]
     Indication: CONTRACEPTION
     Route: 015
     Dates: start: 20081209

REACTIONS (5)
  - COMPLICATION OF DEVICE INSERTION [None]
  - POST PROCEDURAL HAEMORRHAGE [None]
  - PROCEDURAL NAUSEA [None]
  - PROCEDURAL PAIN [None]
  - VAGINAL HAEMORRHAGE [None]
